FAERS Safety Report 4997907-3 (Version None)
Quarter: 2006Q2

REPORT INFORMATION
  Report Type: 
  Country: None (occurrence: None)
  Receive Date: 20060510
  Receipt Date: 20060428
  Transmission Date: 20061013
  Serious: Yes (Death, Hospitalization, Other)
  Sender: FDA-Public Use
  Company Number: PHBS2006US06749

PATIENT
  Age: 58 Year
  Sex: Male

DRUGS (4)
  1. SIMULECT [Suspect]
     Indication: RENAL TRANSPLANT
     Route: 065
  2. SIROLIMUS [Suspect]
     Indication: RENAL TRANSPLANT
     Route: 065
  3. MYCOPHENOLATE MOFETIL [Suspect]
     Indication: RENAL TRANSPLANT
     Route: 065
  4. PREDNISONE TAB [Suspect]
     Indication: RENAL TRANSPLANT
     Route: 065

REACTIONS (38)
  - ACCELERATED HYPERTENSION [None]
  - ACTIVATED PARTIAL THROMBOPLASTIN TIME PROLONGED [None]
  - ADENOVIRUS INFECTION [None]
  - ALANINE AMINOTRANSFERASE INCREASED [None]
  - ASPARTATE AMINOTRANSFERASE INCREASED [None]
  - ATRIOVENTRICULAR BLOCK COMPLETE [None]
  - BLOOD BILIRUBIN INCREASED [None]
  - BLOOD CREATINE PHOSPHOKINASE INCREASED [None]
  - BLOOD POTASSIUM INCREASED [None]
  - CHILLS [None]
  - COLITIS [None]
  - COMPLICATIONS OF TRANSPLANTED KIDNEY [None]
  - COUGH [None]
  - DIARRHOEA [None]
  - DIRECTIONAL DOPPLER FLOW TESTS ABNORMAL [None]
  - HAEMATOCHEZIA [None]
  - HAEMODIALYSIS [None]
  - HAEMOGLOBIN DECREASED [None]
  - HEPATITIS [None]
  - HYPOXIA [None]
  - ILEAL ULCER [None]
  - MALAISE [None]
  - MENTAL STATUS CHANGES [None]
  - MULTI-ORGAN FAILURE [None]
  - NAUSEA [None]
  - OEDEMA PERIPHERAL [None]
  - OLIGURIA [None]
  - PROTHROMBIN TIME PROLONGED [None]
  - PULMONARY CONGESTION [None]
  - PYREXIA [None]
  - RENAL DISORDER [None]
  - RESPIRATORY DISTRESS [None]
  - RESUSCITATION [None]
  - SEPSIS [None]
  - SHOCK [None]
  - STAPHYLOCOCCAL INFECTION [None]
  - TROPONIN I INCREASED [None]
  - VIRAEMIA [None]
